FAERS Safety Report 23778543 (Version 2)
Quarter: 2024Q2

REPORT INFORMATION
  Report Type: Spontaneous
  Country: US (occurrence: US)
  Receive Date: 20240424
  Receipt Date: 20240429
  Transmission Date: 20240716
  Serious: Yes (Other)
  Sender: FDA-Public Use
  Company Number: US-PRESTIGE-202404-US-001047

PATIENT
  Age: 50 Year
  Sex: Female

DRUGS (5)
  1. NASALCROM [Suspect]
     Active Substance: CROMOLYN SODIUM
     Indication: Mast cell activation syndrome
     Dosage: USED ONE SPRAY DAILY FOR A WEEK
     Route: 045
  2. NASALCROM [Suspect]
     Active Substance: CROMOLYN SODIUM
  3. NASALCROM [Suspect]
     Active Substance: CROMOLYN SODIUM
  4. NASALCROM [Suspect]
     Active Substance: CROMOLYN SODIUM
  5. NASALCROM [Suspect]
     Active Substance: CROMOLYN SODIUM

REACTIONS (7)
  - Intracranial pressure increased [Recovered/Resolved]
  - Nasal discomfort [Recovered/Resolved]
  - Throat irritation [Recovered/Resolved]
  - Migraine [Recovered/Resolved]
  - Asthenopia [Recovered/Resolved]
  - Product taste abnormal [Unknown]
  - Product odour abnormal [Unknown]
